FAERS Safety Report 25445156 (Version 1)
Quarter: 2025Q2

REPORT INFORMATION
  Report Type: Spontaneous
  Country: BR (occurrence: BR)
  Receive Date: 20250617
  Receipt Date: 20250617
  Transmission Date: 20250717
  Serious: Yes (Death, Hospitalization, Other)
  Sender: CHEPLAPHARM
  Company Number: BR-ROCHE-2974716

PATIENT
  Age: 59 Year
  Sex: Female

DRUGS (10)
  1. PACLITAXEL [Suspect]
     Active Substance: PACLITAXEL
     Indication: Breast cancer
     Route: 042
     Dates: start: 20210316, end: 20210503
  2. CAPECITABINE [Suspect]
     Active Substance: CAPECITABINE
     Indication: Breast cancer
     Dosage: FREQUENCY WAS 3+2 FOR 7 DAYS EVERY 14 DAYS
     Route: 048
     Dates: start: 20220406, end: 20220627
  3. HERCEPTIN [Suspect]
     Active Substance: TRASTUZUMAB
     Indication: Breast cancer
     Dosage: FREQUENCY:EVERY 3 WEEK
     Route: 042
     Dates: start: 20210205, end: 20220627
  4. PERJETA [Suspect]
     Active Substance: PERTUZUMAB
     Indication: Breast cancer
     Dosage: NUMBER OF CYCLES PER REGIMEN:12 EVERY MONTH
     Route: 042
     Dates: start: 20210205, end: 20220112
  5. PERJETA [Suspect]
     Active Substance: PERTUZUMAB
     Indication: Breast cancer
     Dosage: NUMBER OF CYCLES PER REGIMEN:15,
     Route: 042
     Dates: start: 20210205, end: 20220310
  6. CYCLOPHOSPHAMIDE [Suspect]
     Active Substance: CYCLOPHOSPHAMIDE
     Indication: Breast cancer
     Route: 042
     Dates: start: 20210420
  7. AVASTIN [Suspect]
     Active Substance: BEVACIZUMAB
     Indication: Breast cancer
     Route: 042
  8. KADCYLA [Suspect]
     Active Substance: ADO-TRASTUZUMAB EMTANSINE
     Indication: Breast cancer
     Route: 042
  9. TECENTRIQ [Suspect]
     Active Substance: ATEZOLIZUMAB
     Indication: Breast cancer
     Dosage: FREQUENCY :EVERY 3 WEEK
     Route: 042
  10. NAVELBINE [Suspect]
     Active Substance: VINORELBINE TARTRATE
     Indication: Breast cancer
     Route: 048
     Dates: start: 20211115, end: 20220112

REACTIONS (5)
  - Pancytopenia [Not Recovered/Not Resolved]
  - Pleural effusion [Fatal]
  - Pain [Unknown]
  - Dyspnoea [Unknown]
  - Generalised oedema [Unknown]

NARRATIVE: CASE EVENT DATE: 20210503
